FAERS Safety Report 16047280 (Version 1)
Quarter: 2019Q2

REPORT INFORMATION
  Report Type: Spontaneous
  Country: US (occurrence: US)
  Receive Date: 20190307
  Receipt Date: 20190307
  Transmission Date: 20190711
  Serious: Yes (Life-Threatening)
  Sender: FDA-Public Use
  Company Number: None

PATIENT
  Age: 23 Year
  Sex: Female

DRUGS (1)
  1. GLATIRAMER [Suspect]
     Active Substance: GLATIRAMER
     Indication: MULTIPLE SCLEROSIS
     Dosage: ?          OTHER FREQUENCY:3 TIMES A WEEK;?
     Route: 058
     Dates: start: 20181210, end: 20190306

REACTIONS (4)
  - Vomiting [None]
  - Injection related reaction [None]
  - Dyspnoea [None]
  - Loss of consciousness [None]

NARRATIVE: CASE EVENT DATE: 20190306
